FAERS Safety Report 20472908 (Version 1)
Quarter: 2022Q1

REPORT INFORMATION
  Report Type: Spontaneous
  Country: US (occurrence: None)
  Receive Date: 20220215
  Receipt Date: 20220215
  Transmission Date: 20220423
  Serious: Yes (Hospitalization, Other)
  Sender: FDA-Public Use
  Company Number: US-VistaPharm, Inc.-VER202202-000110

PATIENT
  Age: 44 Year
  Sex: Male

DRUGS (1)
  1. PHENYTOIN [Suspect]
     Active Substance: PHENYTOIN
     Indication: Seizure
     Dosage: UNKNOWN (LOADING)
     Route: 042

REACTIONS (3)
  - Acute hepatic failure [Unknown]
  - Acute kidney injury [Unknown]
  - Coagulopathy [Unknown]
